FAERS Safety Report 6752816-4 (Version None)
Quarter: 2010Q2

REPORT INFORMATION
  Report Type: 
  Country: None (occurrence: None)
  Receive Date: 20100603
  Receipt Date: 20100524
  Transmission Date: 20101027
  Serious: Yes (Hospitalization)
  Sender: FDA-Public Use
  Company Number: US-BIOGENIDEC-2008BI029373

PATIENT
  Age: 31 Year
  Sex: Female

DRUGS (10)
  1. TYSABRI [Suspect]
     Indication: MULTIPLE SCLEROSIS
     Route: 042
     Dates: start: 20080521, end: 20080923
  2. TYSABRI [Suspect]
     Route: 042
     Dates: start: 20090721
  3. PRENATAL VITAMINS [Concomitant]
  4. PHENERGAN [Concomitant]
  5. ROCEPHIN [Concomitant]
     Indication: PNEUMONIA ASPIRATION
     Dates: start: 20090401
  6. BETAMETHASONE [Concomitant]
     Indication: MATERNAL THERAPY TO ENHANCE FOETAL LUNG MATURITY
  7. LIPITOR [Concomitant]
  8. ADDERALL 10 [Concomitant]
  9. CHANTIX [Concomitant]
  10. SEROQUEL [Concomitant]

REACTIONS (2)
  - PREGNANCY [None]
  - SYNCOPE [None]
